FAERS Safety Report 7704134-5 (Version None)
Quarter: 2011Q3

REPORT INFORMATION
  Report Type: 
  Country: None (occurrence: None)
  Receive Date: 20110823
  Receipt Date: 20110816
  Transmission Date: 20111222
  Serious: Yes (Other)
  Sender: FDA-Public Use
  Company Number: US-US-EMD SERONO, INC.-7077444

PATIENT
  Sex: Female

DRUGS (1)
  1. REBIF [Suspect]
     Indication: PRODUCT USED FOR UNKNOWN INDICATION
     Route: 058
     Dates: start: 20110510

REACTIONS (8)
  - MUSCULOSKELETAL STIFFNESS [None]
  - HYPOTENSION [None]
  - HEADACHE [None]
  - PAIN [None]
  - UNRESPONSIVE TO STIMULI [None]
  - MUSCULAR WEAKNESS [None]
  - APHASIA [None]
  - PROTRUSION TONGUE [None]
